FAERS Safety Report 7603541-9 (Version None)
Quarter: 2011Q3

REPORT INFORMATION
  Report Type: 
  Country: None (occurrence: None)
  Receive Date: 20110712
  Receipt Date: 20110627
  Transmission Date: 20111222
  Serious: No
  Sender: FDA-Public Use
  Company Number: US-B.I. PHARMACEUTICALS,INC./RIDGEFIELD-2011-BP-16470BP

PATIENT
  Age: 54 Year
  Sex: Female

DRUGS (1)
  1. PRADAXA [Suspect]
     Indication: ATRIAL FIBRILLATION
     Dosage: 300 MG
     Route: 048
     Dates: start: 20110610

REACTIONS (4)
  - DIARRHOEA [None]
  - ANORECTAL DISCOMFORT [None]
  - RECTAL HAEMORRHAGE [None]
  - ANAL PRURITUS [None]
